FAERS Safety Report 5190988-6 (Version None)
Quarter: 2006Q4

REPORT INFORMATION
  Report Type: 
  Country: None (occurrence: None)
  Receive Date: 20061224
  Receipt Date: 20060517
  Transmission Date: 20070319
  Serious: Yes (Other)
  Sender: FDA-Public Use
  Company Number: FR-ELI_LILLY_AND_COMPANY-FR200605003964

PATIENT
  Age: 64 Year
  Sex: Female
  Weight: 58 kg

DRUGS (4)
  1. ZYPREXA [Suspect]
     Indication: SCHIZOAFFECTIVE DISORDER
     Dosage: 15 MG, DAILY (1/D)
     Route: 048
     Dates: start: 20030603, end: 20060517
  2. SERESTA                                 /NET/ [Concomitant]
     Indication: ANXIETY
     Dosage: 40 MG, DAILY (1/D)
     Route: 048
     Dates: start: 20020624
  3. IMOVANE                                 /UNK/ [Concomitant]
     Indication: INSOMNIA
     Dosage: 7.5 MG, DAILY (1/D)
     Route: 048
     Dates: start: 20050615
  4. SEROPRAM                                /SCH/ [Concomitant]
     Indication: DEPRESSION
     Dosage: 60 MG, DAILY (1/D)
     Route: 048
     Dates: start: 20050407, end: 20060520

REACTIONS (6)
  - ASTHENIA [None]
  - LEUKOPENIA [None]
  - LYMPHOCYTE COUNT DECREASED [None]
  - MONOCYTE COUNT DECREASED [None]
  - NEUTROPENIA [None]
  - WEIGHT DECREASED [None]
